FAERS Safety Report 10010722 (Version 1)
Quarter: 2014Q1

REPORT INFORMATION
  Report Type: Spontaneous
  Country: US (occurrence: US)
  Receive Date: 20140314
  Receipt Date: 20140314
  Transmission Date: 20141002
  Serious: Yes (Other)
  Sender: FDA-Public Use
  Company Number: US-JNJFOC-20140304876

PATIENT
  Age: 73 Year
  Sex: Female
  Weight: 46.27 kg

DRUGS (8)
  1. XARELTO [Suspect]
     Indication: CEREBROVASCULAR ACCIDENT PROPHYLAXIS
     Route: 048
  2. XARELTO [Suspect]
     Indication: CEREBROVASCULAR ACCIDENT PROPHYLAXIS
     Route: 048
     Dates: start: 20140304, end: 20140305
  3. XARELTO [Suspect]
     Indication: ATRIAL FIBRILLATION
     Route: 048
  4. XARELTO [Suspect]
     Indication: ATRIAL FIBRILLATION
     Route: 048
     Dates: start: 20140304, end: 20140305
  5. METHOTREXATE [Concomitant]
     Indication: RHEUMATOID ARTHRITIS
     Dosage: 25 MG TABLET
     Route: 048
  6. FOLIC ACID [Concomitant]
     Indication: DRUG THERAPY
     Route: 048
  7. BYSTOLIC [Concomitant]
     Indication: CARDIAC DISORDER
     Route: 048
     Dates: start: 2013
  8. NORCO [Concomitant]
     Indication: PAIN
     Dosage: 10-325MG/TABLET, 1-2 TABLETS AS NEEDED EVERY 4-6 HOURS, STARTED AT LEAST 7-8 YEARS AGO
     Route: 048

REACTIONS (5)
  - Bedridden [Recovered/Resolved]
  - Off label use [Not Recovered/Not Resolved]
  - Asthenia [Recovered/Resolved]
  - Muscular weakness [Recovering/Resolving]
  - Dyspnoea [Recovered/Resolved]
